FAERS Safety Report 9969645 (Version 1)
Quarter: 2014Q1

REPORT INFORMATION
  Report Type: Spontaneous
  Country: US (occurrence: None)
  Receive Date: 20140304
  Receipt Date: 20140304
  Transmission Date: 20141002
  Serious: Yes (Other)
  Sender: FDA-Public Use
  Company Number: None

PATIENT
  Age: 66 Year
  Sex: Female

DRUGS (12)
  1. TECFIDERA [Suspect]
     Indication: MULTIPLE SCLEROSIS
     Dosage: 1 CAPSULE BID PO
     Route: 048
     Dates: start: 20140221, end: 20140227
  2. CARDURA [Concomitant]
  3. CHLORTHALIDONE [Concomitant]
  4. COZAAR [Concomitant]
  5. LUMIGAN [Concomitant]
  6. METFORMIN HCL [Concomitant]
  7. METOPROLOL TERTRATE [Concomitant]
  8. SINGULAIR [Concomitant]
  9. SYNTHROID [Concomitant]
  10. TIZANIDINE [Concomitant]
  11. HCL [Concomitant]
  12. VITAMIN B-12 [Concomitant]

REACTIONS (3)
  - Fatigue [None]
  - Headache [None]
  - Gastrooesophageal reflux disease [None]
